FAERS Safety Report 5573178-4 (Version None)
Quarter: 2007Q4

REPORT INFORMATION
  Report Type: 
  Country: None (occurrence: None)
  Receive Date: 20071224
  Receipt Date: 20071214
  Transmission Date: 20080405
  Serious: Yes (Other)
  Sender: FDA-Public Use
  Company Number: CA-AVENTIS-200716097EU

PATIENT
  Age: 16 Year
  Sex: Female

DRUGS (1)
  1. GAVISCON [Suspect]
     Dosage: DOSE: UNK
     Route: 048
     Dates: start: 20071122

REACTIONS (1)
  - ANAPHYLACTIC REACTION [None]
